FAERS Safety Report 6582978-3 (Version None)
Quarter: 2010Q1

REPORT INFORMATION
  Report Type: 
  Country: None (occurrence: None)
  Receive Date: 20100204
  Receipt Date: 20100121
  Transmission Date: 20100710
  Serious: Yes (Life-Threatening, Other)
  Sender: FDA-Public Use
  Company Number: 1000011230

PATIENT
  Age: 36 Year
  Sex: Female

DRUGS (6)
  1. ESCITALOPRAM [Suspect]
     Indication: STRESS
     Dosage: 5 MG (5 MG, ORAL)
     Route: 048
     Dates: start: 20091223, end: 20091229
  2. ESCITALOPRAM [Suspect]
     Indication: STRESS
     Dosage: 10 MG (10 MG), ORAL; 5 MG (5 MG), ORAL
     Route: 048
     Dates: start: 20091230, end: 20100101
  3. ESCITALOPRAM [Suspect]
     Indication: STRESS
     Dosage: 10 MG (10 MG), ORAL; 5 MG (5 MG), ORAL
     Route: 048
     Dates: start: 20100102, end: 20100104
  4. ATARAX [Concomitant]
  5. IMOVANE [Concomitant]
  6. SOBRIL [Concomitant]

REACTIONS (18)
  - ANXIETY [None]
  - BODY TEMPERATURE DECREASED [None]
  - CONFUSIONAL STATE [None]
  - DECREASED APPETITE [None]
  - DISTURBANCE IN ATTENTION [None]
  - DIZZINESS [None]
  - DRY MOUTH [None]
  - FATIGUE [None]
  - FEELING ABNORMAL [None]
  - HYPOAESTHESIA [None]
  - INCOHERENT [None]
  - MUSCULAR WEAKNESS [None]
  - NAUSEA [None]
  - RESTLESSNESS [None]
  - SUICIDAL IDEATION [None]
  - TENSION [None]
  - THINKING ABNORMAL [None]
  - TREMOR [None]
